FAERS Safety Report 9371462 (Version 1)
Quarter: 2013Q2

REPORT INFORMATION
  Report Type: Spontaneous
  Country: TW (occurrence: TW)
  Receive Date: 20130627
  Receipt Date: 20130627
  Transmission Date: 20140414
  Serious: Yes (Other)
  Sender: FDA-Public Use
  Company Number: TW-JNJFOC-20130611449

PATIENT
  Age: 37 Year
  Sex: Male

DRUGS (1)
  1. USTEKINUMAB [Suspect]
     Indication: PSORIASIS
     Dosage: ADMINISTERED AT WEEKS 0 AND 4, FOLLOWED BY MAINTENANCE DOSE GIVEN ONCE EVERY 2 TO 3 MONTHS
     Route: 058

REACTIONS (1)
  - Hepatitis B [Unknown]
